FAERS Safety Report 15929951 (Version 1)
Quarter: 2019Q1

REPORT INFORMATION
  Report Type: Report from Study
  Country: PK (occurrence: PK)
  Receive Date: 20190206
  Receipt Date: 20190206
  Transmission Date: 20190417
  Serious: Yes (Death, Hospitalization)
  Sender: FDA-Public Use
  Company Number: PHHY2019PK025348

PATIENT
  Age: 50 Year
  Sex: Female
  Weight: 60 kg

DRUGS (1)
  1. AFINITOR [Suspect]
     Active Substance: EVEROLIMUS
     Indication: NEUROENDOCRINE TUMOUR
     Dosage: 10 MG, QD
     Route: 048
     Dates: start: 20180325

REACTIONS (6)
  - Oedema peripheral [Fatal]
  - Respiratory depression [Fatal]
  - Dyspnoea [Fatal]
  - Decreased appetite [Fatal]
  - Oedema [Unknown]
  - Pain [Fatal]

NARRATIVE: CASE EVENT DATE: 20190102
